FAERS Safety Report 7058503-X (Version None)
Quarter: 2010Q4

REPORT INFORMATION
  Report Type: 
  Country: None (occurrence: None)
  Receive Date: 20101022
  Receipt Date: 20101012
  Transmission Date: 20110411
  Serious: Yes (Other)
  Sender: FDA-Public Use
  Company Number: TH-BAUSCH-2010BL005815

PATIENT
  Age: 73 Year
  Sex: Female

DRUGS (5)
  1. GANCICLOVIR [Suspect]
     Indication: CYTOMEGALOVIRUS CHORIORETINITIS
     Route: 047
  2. TIMOLOL MALEATE [Concomitant]
  3. BRIMONIDINE TARTRATE [Concomitant]
  4. PREDNISOLONE ACETATE [Concomitant]
  5. METHOTREXATE [Concomitant]

REACTIONS (6)
  - ANTERIOR CHAMBER CRYSTALLISATION [None]
  - DRUG TOXICITY [None]
  - INTRAOCULAR PRESSURE INCREASED [None]
  - MACULAR OEDEMA [None]
  - OPTIC ATROPHY [None]
  - RETINAL ARTERY OCCLUSION [None]
